FAERS Safety Report 13561087 (Version 1)
Quarter: 2017Q2

REPORT INFORMATION
  Report Type: Spontaneous
  Country: US (occurrence: US)
  Receive Date: 20170518
  Receipt Date: 20170518
  Transmission Date: 20170830
  Serious: Yes (Life-Threatening, Hospitalization, Disabling, Other)
  Sender: FDA-Public Use
  Company Number: US-ALEXION-A201705198

PATIENT
  Sex: Female

DRUGS (1)
  1. SOLIRIS [Suspect]
     Active Substance: ECULIZUMAB
     Indication: HAEMOLYTIC URAEMIC SYNDROME
     Route: 042

REACTIONS (4)
  - Haemorrhage intracranial [Not Recovered/Not Resolved]
  - Functional gastrointestinal disorder [Unknown]
  - Cerebrovascular accident [Not Recovered/Not Resolved]
  - End stage renal disease [Not Recovered/Not Resolved]
